FAERS Safety Report 8879702 (Version 1)
Quarter: 2012Q4

REPORT INFORMATION
  Report Type: 
  Country: FR (occurrence: FR)
  Receive Date: 20121101
  Receipt Date: 20121101
  Transmission Date: 20130627
  Serious: Yes (Hospitalization, Other)
  Sender: FDA-Public Use
  Company Number: FR-ASTELLAS-2012US010485

PATIENT
  Age: 65 Year
  Sex: Female

DRUGS (2)
  1. TARCEVA [Suspect]
     Indication: LUNG CARCINOMA CELL TYPE UNSPECIFIED STAGE 0
     Dosage: UNK
     Route: 048
     Dates: start: 201110, end: 20120307
  2. TARCEVA [Suspect]
     Indication: LUNG ADENOCARCINOMA

REACTIONS (8)
  - Paresis [Not Recovered/Not Resolved]
  - VIIth nerve paralysis [Not Recovered/Not Resolved]
  - Leukopenia [Unknown]
  - Thrombocytopenia [Unknown]
  - Paraneoplastic syndrome [Unknown]
  - General physical health deterioration [Unknown]
  - Dysphagia [Unknown]
  - Aphonia [Unknown]
